FAERS Safety Report 8765493 (Version 2)
Quarter: 2012Q4

REPORT INFORMATION
  Report Type: 
  Country: JP (occurrence: JP)
  Receive Date: 20120903
  Receipt Date: 20120907
  Transmission Date: 20130627
  Serious: Yes (Death)
  Sender: FDA-Public Use
  Company Number: JP-PFIZER INC-2012215363

PATIENT
  Age: 86 Year

DRUGS (1)
  1. CELECOX [Suspect]
     Indication: NEURALGIA
     Dosage: 200 mg daily
     Route: 048

REACTIONS (2)
  - Gastrointestinal haemorrhage [Fatal]
  - Haematemesis [Fatal]
